FAERS Safety Report 5844804-7 (Version None)
Quarter: 2008Q3

REPORT INFORMATION
  Report Type: 
  Country: None (occurrence: None)
  Receive Date: 20080812
  Receipt Date: 20080804
  Transmission Date: 20090109
  Serious: Yes (Hospitalization)
  Sender: FDA-Public Use
  Company Number: 2008JP003576

PATIENT
  Age: 70 Year
  Sex: Male
  Weight: 168 kg

DRUGS (5)
  1. VESICARE [Suspect]
     Indication: HYPERTONIC BLADDER
     Dosage: 5 MG, UID/QD, ORAL; 7.5 MG, UID/QD, ORAL
     Route: 048
     Dates: start: 20070604, end: 20080605
  2. VESICARE [Suspect]
     Indication: HYPERTONIC BLADDER
     Dosage: 5 MG, UID/QD, ORAL; 7.5 MG, UID/QD, ORAL
     Route: 048
     Dates: start: 20080606
  3. LASIX [Concomitant]
  4. CEPHARANTHIN (CEPHARANTHINE) POWDER [Concomitant]
  5. SAIBOKU-TO (HERBAL EXTRACT NOS) [Concomitant]

REACTIONS (1)
  - INTERSTITIAL LUNG DISEASE [None]
